FAERS Safety Report 8238847-6 (Version None)
Quarter: 2012Q1

REPORT INFORMATION
  Report Type: 
  Country: None (occurrence: None)
  Receive Date: 20120327
  Receipt Date: 20120321
  Transmission Date: 20120608
  Serious: Yes (Other)
  Sender: FDA-Public Use
  Company Number: US-BAYER-2012-028159

PATIENT
  Age: 66 Year
  Sex: Female
  Weight: 65.76 kg

DRUGS (5)
  1. CALCIUM CARBONATE [Concomitant]
  2. BIO FLEX [Concomitant]
  3. ALEVE (CAPLET) [Suspect]
     Indication: ARTHRITIS
     Dosage: 1 DF, BID
     Route: 048
     Dates: start: 20120229
  4. MULTI-VITAMIN [Concomitant]
  5. FISH OIL [Concomitant]

REACTIONS (1)
  - FAECALOMA [None]
